FAERS Safety Report 16148261 (Version 1)
Quarter: 2019Q2

REPORT INFORMATION
  Report Type: Spontaneous
  Country: US (occurrence: US)
  Receive Date: 20190402
  Receipt Date: 20190402
  Transmission Date: 20190711
  Serious: No
  Sender: FDA-Public Use
  Company Number: US-BAYER-2019-064382

PATIENT
  Sex: Female
  Weight: 68 kg

DRUGS (4)
  1. DULCOLAX [SODIUM PICOSULFATE] [Concomitant]
     Indication: GASTROINTESTINAL DISORDER
     Route: 048
  2. MIRALAX [Suspect]
     Active Substance: POLYETHYLENE GLYCOL 3350
     Indication: GASTROINTESTINAL DISORDER
     Dosage: UNK
     Route: 048
  3. KRISTALOSE [Suspect]
     Active Substance: LACTULOSE
     Indication: GASTROINTESTINAL DISORDER
     Dosage: 20 G
     Route: 065
  4. MIRALAX [Suspect]
     Active Substance: POLYETHYLENE GLYCOL 3350
     Indication: CONSTIPATION

REACTIONS (2)
  - Incorrect dose administered [Unknown]
  - Product use in unapproved indication [Unknown]

NARRATIVE: CASE EVENT DATE: 20190330
